FAERS Safety Report 22343201 (Version 2)
Quarter: 2023Q2

REPORT INFORMATION
  Report Type: Report from Study
  Country: AU (occurrence: AU)
  Receive Date: 20230519
  Receipt Date: 20230622
  Transmission Date: 20230721
  Serious: Yes (Other)
  Sender: FDA-Public Use
  Company Number: AU-SAMSUNG BIOEPIS-SB-2022-30056

PATIENT
  Age: 58 Year
  Sex: Female

DRUGS (3)
  1. HADLIMA [Suspect]
     Active Substance: ADALIMUMAB-BWWD
     Indication: Crohn^s disease
     Dosage: UNKNOWN, STARTED QUITE A YEAR AGO, ONE INJECTION
     Route: 065
  2. HADLIMA [Suspect]
     Active Substance: ADALIMUMAB-BWWD
     Dosage: UNKNOWN, 1 INJECTION (INTO THE THIGH), STOPPED 4 WEEKS AGO
     Route: 065
  3. HADLIMA [Suspect]
     Active Substance: ADALIMUMAB-BWWD
     Dosage: UNKNOWN, RESTARTED THE HADLIMA 5-6 WEEKS AGO;
     Route: 065

REACTIONS (6)
  - Paraesthesia [Not Recovered/Not Resolved]
  - Staphylococcal skin infection [Recovered/Resolved]
  - Nosocomial infection [Recovered/Resolved]
  - Immunodeficiency [Unknown]
  - COVID-19 [Unknown]
  - Viral infection [Unknown]

NARRATIVE: CASE EVENT DATE: 20220701
